FAERS Safety Report 19467666 (Version 1)
Quarter: 2021Q2

REPORT INFORMATION
  Report Type: Spontaneous
  Country: IT (occurrence: IT)
  Receive Date: 20210628
  Receipt Date: 20210628
  Transmission Date: 20210717
  Serious: Yes (Other)
  Sender: FDA-Public Use
  Company Number: IT-ELI_LILLY_AND_COMPANY-IT202104004110

PATIENT
  Age: 53 Year
  Sex: Female
  Weight: 70 kg

DRUGS (3)
  1. ZYPADHERA [Suspect]
     Active Substance: OLANZAPINE PAMOATE
     Indication: PSYCHOTIC DISORDER
     Dosage: 1 DOSAGE FORM, CYCLICAL
     Route: 030
     Dates: start: 20110101
  2. ZYPADHERA [Suspect]
     Active Substance: OLANZAPINE PAMOATE
     Indication: PSYCHOTIC DISORDER
     Dosage: 1 DOSAGE FORM, CYCLICAL
     Route: 030
     Dates: start: 20110101
  3. ZYPADHERA [Suspect]
     Active Substance: OLANZAPINE PAMOATE
     Indication: PSYCHOTIC DISORDER
     Dosage: 1 DOSAGE FORM, CYCLICAL
     Route: 030
     Dates: start: 20110101

REACTIONS (4)
  - Consciousness fluctuating [Recovered/Resolved]
  - Post-injection delirium sedation syndrome [Recovered/Resolved]
  - Pallor [Recovered/Resolved]
  - Sopor [Recovered/Resolved]

NARRATIVE: CASE EVENT DATE: 20210331
